FAERS Safety Report 13239987 (Version 1)
Quarter: 2017Q1

REPORT INFORMATION
  Report Type: Spontaneous
  Country: US (occurrence: US)
  Receive Date: 20170216
  Receipt Date: 20170216
  Transmission Date: 20170428
  Serious: No
  Sender: FDA-Public Use
  Company Number: US-PFIZER INC-2017068475

PATIENT
  Age: 42 Year
  Sex: Female

DRUGS (1)
  1. IBRANCE [Suspect]
     Active Substance: PALBOCICLIB
     Indication: BREAST CANCER FEMALE
     Dosage: 125 MG, CYCLIC (ONE TABLET DAILY FOR 21 DAYS THEN OFF 7 DAYS THEN REPEAT)
     Route: 048
     Dates: start: 20170127

REACTIONS (3)
  - Alopecia [Unknown]
  - Nail disorder [Unknown]
  - Epistaxis [Unknown]
